FAERS Safety Report 12338321 (Version 2)
Quarter: 2016Q2

REPORT INFORMATION
  Report Type: Spontaneous
  Country: FR (occurrence: FR)
  Receive Date: 20160505
  Receipt Date: 20160613
  Transmission Date: 20160815
  Serious: Yes (Death, Hospitalization, Other)
  Sender: FDA-Public Use
  Company Number: FR-BRISTOL-MYERS SQUIBB COMPANY-BMS-2016-035228

PATIENT
  Age: 77 Year
  Sex: Female
  Weight: 108 kg

DRUGS (3)
  1. NEURONTIN [Concomitant]
     Active Substance: GABAPENTIN
     Indication: PRODUCT USED FOR UNKNOWN INDICATION
     Dosage: UNK
     Route: 065
  2. ELIQUIS [Suspect]
     Active Substance: APIXABAN
     Indication: PRODUCT USED FOR UNKNOWN INDICATION
     Dosage: 5 MG, BID
     Route: 048
  3. LEVOTHYROX [Concomitant]
     Active Substance: LEVOTHYROXINE
     Indication: PRODUCT USED FOR UNKNOWN INDICATION
     Dosage: UNK
     Route: 065

REACTIONS (30)
  - Death [Fatal]
  - Asthenia [Unknown]
  - Haemorrhage [Unknown]
  - Tinea cruris [Unknown]
  - Vascular pseudoaneurysm [Unknown]
  - Procedural haemorrhage [Unknown]
  - Haemothorax [Unknown]
  - Condition aggravated [Unknown]
  - Skin necrosis [Unknown]
  - Gastric haemorrhage [Unknown]
  - Shock haemorrhagic [Fatal]
  - Transfusion [Unknown]
  - Biopsy bone marrow [Unknown]
  - Tachycardia [Unknown]
  - Haematoma [Unknown]
  - Therapeutic embolisation [Unknown]
  - Respiratory tract congestion [Unknown]
  - Bundle branch block right [Unknown]
  - Haemodynamic instability [Unknown]
  - Platelet count decreased [Unknown]
  - Vascular injury [Unknown]
  - Pneumonia [Unknown]
  - Disseminated intravascular coagulation [Unknown]
  - Surgery [Unknown]
  - Haemoglobin decreased [Unknown]
  - Multiple organ dysfunction syndrome [Unknown]
  - Haematoma evacuation [Unknown]
  - Respiratory distress [Unknown]
  - Platelet disorder [Unknown]
  - Skin operation [Unknown]

NARRATIVE: CASE EVENT DATE: 20160421
